FAERS Safety Report 6748796-8 (Version None)
Quarter: 2010Q2

REPORT INFORMATION
  Report Type: 
  Country: None (occurrence: None)
  Receive Date: 20100601
  Receipt Date: 20100520
  Transmission Date: 20101027
  Serious: Yes (Hospitalization)
  Sender: FDA-Public Use
  Company Number: PHHY2010KR33824

PATIENT
  Age: 38 Year
  Sex: Male

DRUGS (2)
  1. CARBAMAZEPINE [Suspect]
     Indication: TEMPORAL LOBE EPILEPSY
     Dosage: 600-800 MG, PER DAY
     Route: 048
  2. CARBAMAZEPINE [Suspect]
     Dosage: UNK
     Route: 048

REACTIONS (4)
  - CATARACT CORTICAL [None]
  - CONVULSION [None]
  - GRAND MAL CONVULSION [None]
  - VISUAL ACUITY REDUCED [None]
